FAERS Safety Report 4429232-3 (Version None)
Quarter: 2004Q3

REPORT INFORMATION
  Report Type: 
  Country: None (occurrence: None)
  Receive Date: 20040817
  Receipt Date: 20040817
  Transmission Date: 20050211
  Serious: Yes (Other)
  Sender: FDA-Public Use
  Company Number: None

PATIENT
  Sex: Male
  Weight: 62.5 kg

DRUGS (1)
  1. NICARDIPINE HCL [Suspect]
     Indication: HYPERTENSIVE EMERGENCY
     Dosage: 2.5-5 MG IV
     Route: 042
     Dates: start: 20040815, end: 20040815

REACTIONS (2)
  - BACK PAIN [None]
  - CHILLS [None]
